FAERS Safety Report 20310732 (Version 1)
Quarter: 2022Q1

REPORT INFORMATION
  Report Type: Spontaneous
  Country: US (occurrence: None)
  Receive Date: 20220107
  Receipt Date: 20220107
  Transmission Date: 20220423
  Serious: Yes (Hospitalization)
  Sender: FDA-Public Use
  Company Number: None

PATIENT
  Sex: Male

DRUGS (21)
  1. ESBRIET [Suspect]
     Active Substance: PIRFENIDONE
     Indication: Idiopathic pulmonary fibrosis
     Route: 048
     Dates: start: 20201212
  2. ABILIFY [Concomitant]
     Active Substance: ARIPIPRAZOLE
  3. ALLOPURINOL [Concomitant]
     Active Substance: ALLOPURINOL
  4. AMBIEN [Concomitant]
     Active Substance: ZOLPIDEM TARTRATE
  5. ATORVASTATIN [Concomitant]
     Active Substance: ATORVASTATIN
  6. DEPAKOTE [Concomitant]
     Active Substance: DIVALPROEX SODIUM
  7. DILTIAZEM [Concomitant]
     Active Substance: DILTIAZEM
  8. ESBRIET [Concomitant]
     Active Substance: PIRFENIDONE
  9. FUROSEMIDE [Concomitant]
     Active Substance: FUROSEMIDE
  10. GABAPENTIN [Concomitant]
     Active Substance: GABAPENTIN
  11. HUMALOG [Concomitant]
     Active Substance: INSULIN LISPRO
  12. HUMALOG KWIKPEN [Concomitant]
     Active Substance: INSULIN LISPRO
  13. ISOSORBIDE MONONITRATE [Concomitant]
     Active Substance: ISOSORBIDE MONONITRATE
  14. METOPROL SUC [Concomitant]
  15. PAROXETINE [Concomitant]
  16. POTASSIUM CHLORIDE [Concomitant]
     Active Substance: POTASSIUM CHLORIDE
  17. PROTONIX [Concomitant]
     Active Substance: PANTOPRAZOLE SODIUM
  18. TOPROL XL [Concomitant]
  19. TOUJEO MAX [Concomitant]
  20. VITAMIN D3 [Concomitant]
     Active Substance: CHOLECALCIFEROL
  21. XARELTO [Concomitant]
     Active Substance: RIVAROXABAN

REACTIONS (1)
  - Coronary artery embolism [None]
